FAERS Safety Report 6999383-8 (Version None)
Quarter: 2010Q3

REPORT INFORMATION
  Report Type: 
  Country: None (occurrence: None)
  Receive Date: 20100920
  Receipt Date: 20100312
  Transmission Date: 20110219
  Serious: No
  Sender: FDA-Public Use
  Company Number: US-ASTRAZENECA-2008UW24924

PATIENT
  Age: 52 Year
  Sex: Male

DRUGS (8)
  1. SEROQUEL [Suspect]
     Route: 048
     Dates: start: 20080901
  2. NEXIUM [Suspect]
     Route: 048
  3. LISINOPRIL [Concomitant]
  4. CLONIDINE [Concomitant]
  5. DEXTROL LA [Concomitant]
  6. VICODIN [Concomitant]
  7. CLONOPIN [Concomitant]
  8. MARIJUANA [Concomitant]

REACTIONS (8)
  - ASTHENIA [None]
  - BLOOD GLUCOSE INCREASED [None]
  - DECREASED APPETITE [None]
  - DEPRESSION [None]
  - FATIGUE [None]
  - HYPERHIDROSIS [None]
  - WEIGHT DECREASED [None]
  - WEIGHT INCREASED [None]
